FAERS Safety Report 5114884-5 (Version None)
Quarter: 2006Q3

REPORT INFORMATION
  Report Type: 
  Country: None (occurrence: None)
  Receive Date: 20060921
  Receipt Date: 20060913
  Transmission Date: 20061208
  Serious: Yes (Hospitalization, Other)
  Sender: FDA-Public Use
  Company Number: 2006AL002788

PATIENT
  Age: 76 Year
  Sex: Female

DRUGS (2)
  1. DICLOFENAC SODIUM [Suspect]
     Indication: PAIN
     Dosage: 75 MG; QD; PO
     Route: 048
     Dates: start: 20060325, end: 20060403
  2. CLODRONIC ACID [Concomitant]

REACTIONS (3)
  - CONDITION AGGRAVATED [None]
  - PAIN [None]
  - RENAL FAILURE [None]
